FAERS Safety Report 4627074-7 (Version None)
Quarter: 2005Q1

REPORT INFORMATION
  Report Type: 
  Country: None (occurrence: None)
  Receive Date: 20050331
  Receipt Date: 20050321
  Transmission Date: 20050727
  Serious: Yes (Hospitalization, Other)
  Sender: FDA-Public Use
  Company Number: 2005048413

PATIENT
  Age: 68 Year
  Sex: Female
  Weight: 54.4316 kg

DRUGS (4)
  1. NEURONTIN [Suspect]
     Indication: CONVULSION
     Dosage: 1800 MG (600 MG, 3 IN 1 D), ORAL
     Route: 048
  2. SINEMET [Suspect]
     Indication: PARKINSON'S DISEASE
     Dosage: ORAL
     Route: 048
     Dates: end: 20050101
  3. ANTIHYPERTENSIVES (ANTIHYPERTENSIVES) [Concomitant]
  4. ANTI-DIABETICS (ANTI-DIABETICS) [Concomitant]

REACTIONS (6)
  - ABDOMINAL PAIN UPPER [None]
  - AMNESIA [None]
  - DEAFNESS UNILATERAL [None]
  - DIZZINESS [None]
  - TINNITUS [None]
  - TRANSIENT ISCHAEMIC ATTACK [None]
